FAERS Safety Report 22781534 (Version 10)
Quarter: 2024Q2

REPORT INFORMATION
  Report Type: Report from Study
  Country: CN (occurrence: CN)
  Receive Date: 20230803
  Receipt Date: 20240528
  Transmission Date: 20240715
  Serious: Yes (Other)
  Sender: FDA-Public Use
  Company Number: CN-TAKEDA-2023TUS074637

PATIENT
  Age: 30 Year
  Sex: Male
  Weight: 59 kg

DRUGS (7)
  1. BRENTUXIMAB VEDOTIN [Suspect]
     Active Substance: BRENTUXIMAB VEDOTIN
     Indication: Hodgkin^s disease
     Dosage: 50 MILLIGRAM, Q2WEEKS
     Route: 041
     Dates: start: 20230630
  2. VINDESINE [Concomitant]
     Active Substance: VINDESINE
     Dosage: 4 MILLIGRAM, QD
     Route: 042
     Dates: start: 20230701, end: 20230701
  3. VINDESINE [Concomitant]
     Active Substance: VINDESINE
     Dosage: 4 MILLIGRAM, QD
     Route: 042
     Dates: start: 20230714, end: 20230714
  4. PIRARUBICIN HYDROCHLORIDE [Concomitant]
     Active Substance: PIRARUBICIN HYDROCHLORIDE
     Dosage: 40 MILLIGRAM, QD
     Route: 042
     Dates: start: 20230701, end: 20230701
  5. PIRARUBICIN HYDROCHLORIDE [Concomitant]
     Active Substance: PIRARUBICIN HYDROCHLORIDE
     Dosage: 40 MILLIGRAM, QD
     Route: 042
     Dates: start: 20230714, end: 20230714
  6. DACARBAZINE [Concomitant]
     Active Substance: DACARBAZINE
     Dosage: 0.6 GRAM, QD
     Route: 042
     Dates: start: 20230701, end: 20230701
  7. DACARBAZINE [Concomitant]
     Active Substance: DACARBAZINE
     Dosage: 0.6 GRAM, QD
     Route: 042
     Dates: start: 20230714, end: 20230714

REACTIONS (6)
  - Myelosuppression [Recovered/Resolved]
  - Paraneoplastic pemphigus [Not Recovered/Not Resolved]
  - Decreased appetite [Recovered/Resolved]
  - Gastrointestinal disorder [Not Recovered/Not Resolved]
  - Beta 2 microglobulin increased [Not Recovered/Not Resolved]
  - Off label use [Unknown]

NARRATIVE: CASE EVENT DATE: 20230630
